FAERS Safety Report 4406511-7 (Version None)
Quarter: 2004Q3

REPORT INFORMATION
  Report Type: 
  Country: None (occurrence: None)
  Receive Date: 20040716
  Receipt Date: 20040702
  Transmission Date: 20050211
  Serious: Yes (Other)
  Sender: FDA-Public Use
  Company Number: GB-JNJFOC-20040702589

PATIENT
  Age: 80 Year
  Sex: Female

DRUGS (4)
  1. IBUPROFEN [Suspect]
     Indication: ARTHRALGIA
     Dosage: 400 MG, 3 IN 1 DAY
  2. LEVOBUNOLOL (LEVOBUNOLOL) [Concomitant]
  3. LATANOPROST [Concomitant]
  4. DORZOLAMIDE (DORZOLAMIDE) [Concomitant]

REACTIONS (10)
  - ACANTHOSIS [None]
  - ACUTE GENERALISED EXANTHEMATOUS PUSTULOSIS [None]
  - DISEASE RECURRENCE [None]
  - LYMPHOCYTIC INFILTRATION [None]
  - NEUTROPHIL COUNT INCREASED [None]
  - PARAKERATOSIS [None]
  - PSORIASIS [None]
  - SKIN DESQUAMATION [None]
  - SUBCORNEAL PUSTULAR DERMATOSIS [None]
  - WHITE BLOOD CELL COUNT INCREASED [None]
